FAERS Safety Report 15886915 (Version 1)
Quarter: 2019Q1

REPORT INFORMATION
  Report Type: Spontaneous
  Country: FI (occurrence: FI)
  Receive Date: 20190130
  Receipt Date: 20190130
  Transmission Date: 20190417
  Serious: Yes (Hospitalization)
  Sender: FDA-Public Use
  Company Number: FI-ROCHE-2253371

PATIENT
  Age: 64 Year
  Sex: Female

DRUGS (11)
  1. CARBOPLATIN. [Suspect]
     Active Substance: CARBOPLATIN
     Indication: METASTATIC UTERINE CANCER
     Route: 048
  2. CAELYX [Suspect]
     Active Substance: DOXORUBICIN HYDROCHLORIDE
     Indication: METASTATIC UTERINE CANCER
     Route: 065
  3. STILNOCT [Concomitant]
     Active Substance: ZOLPIDEM TARTRATE
     Dosage: 10,MG,DAILY
     Route: 048
  4. PRIMPERAN [Concomitant]
     Active Substance: METOCLOPRAMIDE HYDROCHLORIDE
     Dosage: ,,AS NECESSARY
     Route: 065
  5. ORADEXON [Concomitant]
     Active Substance: DEXAMETHASONE
     Indication: PREMEDICATION
     Route: 065
  6. VAGIFEM [Concomitant]
     Active Substance: ESTRADIOL
     Route: 065
  7. ALOXI [Concomitant]
     Active Substance: PALONOSETRON HYDROCHLORIDE
     Route: 065
  8. SIMVASTATIN. [Concomitant]
     Active Substance: SIMVASTATIN
     Indication: HYPERCHOLESTEROLAEMIA
     Dosage: 20,MG,DAILY
     Route: 048
  9. KINZALMONO [Concomitant]
     Active Substance: TELMISARTAN
     Indication: HYPERTENSION
     Dosage: 40,MG,DAILY
     Route: 048
  10. AVASTIN [Suspect]
     Active Substance: BEVACIZUMAB
     Indication: METASTATIC UTERINE CANCER
     Dosage: DATE OF MOST RECENT DOSE: 05/NOV/2018
     Route: 042
     Dates: start: 20180611
  11. BISOPROLOL [Concomitant]
     Active Substance: BISOPROLOL
     Indication: HYPERTENSION
     Dosage: 5,MG,DAILY
     Route: 048

REACTIONS (14)
  - Subarachnoid haemorrhage [Unknown]
  - Proteinuria [Unknown]
  - Electrocardiogram abnormal [Unknown]
  - Blood creatine phosphokinase increased [Unknown]
  - Blood lactic acid increased [Unknown]
  - Brain contusion [Unknown]
  - C-reactive protein increased [Unknown]
  - Polycythaemia [Unknown]
  - Hyponatraemia [Unknown]
  - Pyrexia [Unknown]
  - Leukocytosis [Unknown]
  - Brain oedema [Unknown]
  - Sinus tachycardia [Unknown]
  - Epilepsy [Unknown]

NARRATIVE: CASE EVENT DATE: 20181112
